FAERS Safety Report 7229185-9 (Version None)
Quarter: 2011Q1

REPORT INFORMATION
  Report Type: 
  Country: None (occurrence: None)
  Receive Date: 20110117
  Receipt Date: 20110110
  Transmission Date: 20110831
  Serious: Yes (Hospitalization)
  Sender: FDA-Public Use
  Company Number: US-JNJFOC-20110102691

PATIENT
  Sex: Male
  Weight: 69.85 kg

DRUGS (9)
  1. FENTANYL-100 [Suspect]
     Indication: BACK PAIN
     Route: 062
  2. FENTANYL-100 [Suspect]
     Route: 062
  3. FLOMAX [Concomitant]
     Indication: URINE ABNORMALITY
     Route: 048
  4. ACTIGALL [Concomitant]
     Indication: GALLBLADDER DISORDER
     Route: 048
  5. LEVSIN [Concomitant]
     Indication: PROCTALGIA
     Route: 065
  6. ANUCORT-HC [Concomitant]
     Indication: PROCTITIS
     Route: 054
  7. FENTANYL-100 [Suspect]
     Indication: BACK PAIN
     Route: 062
  8. APRISO [Concomitant]
     Indication: COLITIS
     Route: 048
  9. AMBIEN [Concomitant]
     Indication: SLEEP DISORDER
     Dosage: NIGHTLY
     Route: 048

REACTIONS (4)
  - PAIN [None]
  - DEHYDRATION [None]
  - DIARRHOEA [None]
  - THERAPEUTIC RESPONSE DECREASED [None]
